FAERS Safety Report 5041266-7 (Version None)
Quarter: 2006Q2

REPORT INFORMATION
  Report Type: 
  Country: None (occurrence: None)
  Receive Date: 20060626
  Receipt Date: 20060609
  Transmission Date: 20061013
  Serious: Yes (Disabling)
  Sender: FDA-Public Use
  Company Number: DSA_26778_2005

PATIENT
  Age: 46 Year
  Sex: Female
  Weight: 58.0604 kg

DRUGS (7)
  1. ATIVAN [Suspect]
     Indication: ANXIETY
     Dosage: 2 MG TID PO
     Route: 048
     Dates: start: 20050701
  2. ATIVAN [Suspect]
     Indication: BIPOLAR DISORDER
     Dosage: 2 MG TID PO
     Route: 048
     Dates: start: 20050701
  3. ATIVAN [Suspect]
     Indication: DEPRESSION
     Dosage: 2 MG TID PO
     Route: 048
     Dates: start: 20050701
  4. ATIVAN [Suspect]
     Indication: ANXIETY
     Dosage: DF
     Dates: start: 19840101, end: 20050701
  5. ATIVAN [Suspect]
     Indication: BIPOLAR DISORDER
     Dosage: DF
     Dates: start: 19840101, end: 20050701
  6. ATIVAN [Suspect]
     Indication: DEPRESSION
     Dosage: DF
     Dates: start: 19840101, end: 20050701
  7. TRILEPTAL [Concomitant]

REACTIONS (16)
  - ANXIETY [None]
  - APPETITE DISORDER [None]
  - DIFFICULTY IN WALKING [None]
  - DISTURBANCE IN ATTENTION [None]
  - DRUG INEFFECTIVE [None]
  - DYSPNOEA [None]
  - EYE DISORDER [None]
  - HYPOTENSION [None]
  - PAIN [None]
  - PALPITATIONS [None]
  - PHARMACEUTICAL PRODUCT COMPLAINT [None]
  - SOMNOLENCE [None]
  - SPEECH DISORDER [None]
  - TENSION [None]
  - THERAPEUTIC RESPONSE UNEXPECTED WITH DRUG SUBSTITUTION [None]
  - WEIGHT DECREASED [None]
